FAERS Safety Report 13388872 (Version 1)
Quarter: 2017Q1

REPORT INFORMATION
  Report Type: Spontaneous
  Country: US (occurrence: US)
  Receive Date: 20170330
  Receipt Date: 20170330
  Transmission Date: 20170429
  Serious: Yes (Other)
  Sender: FDA-Public Use
  Company Number: US-BAYER-2017-055355

PATIENT
  Age: 48 Year
  Sex: Male
  Weight: 95 kg

DRUGS (3)
  1. MIRALAX [Suspect]
     Active Substance: POLYETHYLENE GLYCOL 3350
     Indication: COLONOSCOPY
     Dosage: 9 DF, QD WITH 48OZ GATORADE
     Route: 048
     Dates: start: 20170309, end: 20170310
  2. DULCOLAX PICOSULFAT [Concomitant]
     Active Substance: SODIUM PICOSULFATE
     Dosage: 4 DF, UNK
     Dates: start: 20170310, end: 20170310
  3. MIRALAX [Suspect]
     Active Substance: POLYETHYLENE GLYCOL 3350
     Indication: COLONOSCOPY
     Dosage: 3 DF, QD
     Route: 048
     Dates: start: 20170306, end: 20170308

REACTIONS (9)
  - Hypotension [Recovered/Resolved]
  - Blood glucose decreased [Recovered/Resolved]
  - Fatigue [Recovered/Resolved]
  - Off label use [None]
  - Chest pain [Recovered/Resolved]
  - Dizziness [Recovered/Resolved]
  - Hyperhidrosis [Recovered/Resolved]
  - Asthenia [Recovered/Resolved]
  - Heart rate decreased [Recovered/Resolved]

NARRATIVE: CASE EVENT DATE: 201703
